FAERS Safety Report 21257685 (Version 1)
Quarter: 2022Q3

REPORT INFORMATION
  Report Type: Other
  Country: FR (occurrence: FR)
  Receive Date: 20220826
  Receipt Date: 20220826
  Transmission Date: 20221027
  Serious: Yes (Hospitalization)
  Sender: FDA-Public Use
  Company Number: None

PATIENT

DRUGS (5)
  1. BUSULFAN [Suspect]
     Active Substance: BUSULFAN
     Indication: Acute myeloid leukaemia
     Dosage: 175 MG, QD
     Route: 042
     Dates: start: 20220630, end: 20220701
  2. FLUDARABINE [Suspect]
     Active Substance: FLUDARABINE PHOSPHATE
     Indication: Acute myeloid leukaemia
     Dosage: 50 MG, QD
     Route: 042
     Dates: start: 20220623, end: 20220626
  3. CYCLOPHOSPHAMIDE [Suspect]
     Active Substance: CYCLOPHOSPHAMIDE
     Indication: Acute myeloid leukaemia
     Dosage: 3 G, QD
     Route: 042
     Dates: start: 20220702, end: 20220703
  4. AMSACRINE [Suspect]
     Active Substance: AMSACRINE
     Indication: Acute myeloid leukaemia
     Dosage: 150 MG, QD
     Route: 042
     Dates: start: 20220623, end: 20220626
  5. CYTARABINE [Suspect]
     Active Substance: CYTARABINE
     Indication: Acute myeloid leukaemia
     Dosage: 1500 MG, QOD
     Route: 042
     Dates: start: 20220626, end: 20220629

REACTIONS (1)
  - Infusion site eschar [Recovered/Resolved with Sequelae]

NARRATIVE: CASE EVENT DATE: 20220707
